FAERS Safety Report 21889110 (Version 2)
Quarter: 2023Q1

REPORT INFORMATION
  Report Type: Report from Study
  Country: MX (occurrence: MX)
  Receive Date: 20230120
  Receipt Date: 20230224
  Transmission Date: 20230418
  Serious: Yes (Life-Threatening, Other)
  Sender: FDA-Public Use
  Company Number: MX-002147023-NVSC2023MX012735

PATIENT
  Sex: Female
  Weight: 58.6 kg

DRUGS (8)
  1. HYDROCHLOROTHIAZIDE\VALSARTAN [Suspect]
     Active Substance: HYDROCHLOROTHIAZIDE\VALSARTAN
     Indication: Hypertension
     Dosage: 1 DOSAGE FORM, BID (STOP DATE: A MONTH AGO)
     Route: 048
     Dates: start: 2017
  2. HYDROCHLOROTHIAZIDE\VALSARTAN [Suspect]
     Active Substance: HYDROCHLOROTHIAZIDE\VALSARTAN
     Dosage: 1 DOSAGE FORM, TID (START DATE: A MONTH AGO, STOP DATE: A WEEK AGO)
     Route: 048
  3. HYDROCHLOROTHIAZIDE\VALSARTAN [Suspect]
     Active Substance: HYDROCHLOROTHIAZIDE\VALSARTAN
     Dosage: UNK, TID (START DATE: A WEEK AGO)
     Route: 048
  4. HYDROCHLOROTHIAZIDE\VALSARTAN [Suspect]
     Active Substance: HYDROCHLOROTHIAZIDE\VALSARTAN
     Dosage: 1 DOSAGE FORM (1 IN THE MORNING 1 AT A NIGHT)
     Route: 065
     Dates: end: 202301
  5. HYDROCHLOROTHIAZIDE\VALSARTAN [Suspect]
     Active Substance: HYDROCHLOROTHIAZIDE\VALSARTAN
     Dosage: 4 DOSAGE FORM (1 IN THE MORN ING, 1 AT 15:0 0 AND 2 AT NIGHT)
     Route: 065
     Dates: start: 202301
  6. METOPROLOL [Suspect]
     Active Substance: METOPROLOL
     Indication: Hypertension
     Dosage: 100 MG, 1 METOPROLOL (1 MORNING 1 NIGHT)
     Route: 065
  7. EVIPRESS [Concomitant]
     Indication: Hypertension
     Dosage: 10 MG (1/2 MORNING 1/2 NIGHT)
     Route: 065
  8. EVIPRESS [Concomitant]
     Dosage: 10 MG
     Route: 065

REACTIONS (3)
  - Hypertensive crisis [Recovering/Resolving]
  - Blood pressure increased [Unknown]
  - Off label use [Unknown]

NARRATIVE: CASE EVENT DATE: 20170101
